FAERS Safety Report 9274135 (Version 1)
Quarter: 2013Q2

REPORT INFORMATION
  Report Type: Spontaneous
  Country: US (occurrence: US)
  Receive Date: 20130506
  Receipt Date: 20130506
  Transmission Date: 20140414
  Serious: No
  Sender: FDA-Public Use
  Company Number: US-AMGEN-USASP2013028325

PATIENT
  Age: 63 Year
  Sex: Female
  Weight: 88.44 kg

DRUGS (10)
  1. ENBREL [Suspect]
     Indication: PRODUCT USED FOR UNKNOWN INDICATION
     Dosage: UNK
  2. HUMIRA [Concomitant]
     Indication: RHEUMATOID ARTHRITIS
     Dosage: 40 MG, Q2WK
     Dates: start: 2012, end: 201301
  3. CYMBALTA [Concomitant]
     Dosage: UNK
  4. NEXIUM                             /01479302/ [Concomitant]
     Dosage: UNK
  5. METOPROLOL [Concomitant]
     Dosage: UNK
  6. GABAPENTIN [Concomitant]
     Dosage: UNK
  7. TRAMADOL [Concomitant]
     Dosage: UNK
  8. BABY ASPIRIN [Concomitant]
     Dosage: 81 MG, UNK
  9. FLOVENT [Concomitant]
     Dosage: UNK
  10. TYLENOL                            /00020001/ [Concomitant]
     Dosage: UNK, TYLENOL MIGRAINE AND TYLENOL EXTRA STRENGTH

REACTIONS (4)
  - Local swelling [Unknown]
  - Cystitis [Unknown]
  - Hypertension [Unknown]
  - Drug ineffective [Unknown]
